FAERS Safety Report 8958846 (Version 1)
Quarter: 2012Q4

REPORT INFORMATION
  Report Type: 
  Country: US (occurrence: US)
  Receive Date: 20121212
  Receipt Date: 20121212
  Transmission Date: 20130627
  Serious: Yes (Hospitalization)
  Sender: FDA-Public Use
  Company Number: US-BAYER-2012-129250

PATIENT
  Sex: Female

DRUGS (10)
  1. YASMIN [Suspect]
  2. PRENATAL VITAMINS [Concomitant]
  3. COENZYME Q10 [Concomitant]
  4. ACIDOPHILUS [Concomitant]
  5. FLAX SEED OIL [Concomitant]
  6. GARLIC [Concomitant]
  7. ECHINACEA [Concomitant]
  8. LIPOTANE [Concomitant]
  9. FIONASE [Concomitant]
  10. CHOLORASE [Concomitant]
     Dosage: UNK

REACTIONS (2)
  - Transverse sinus thrombosis [None]
  - Cerebellar infarction [None]
